FAERS Safety Report 8785367 (Version 2)
Quarter: 2012Q4

REPORT INFORMATION
  Report Type: 
  Country: US (occurrence: US)
  Receive Date: 20120914
  Receipt Date: 20121109
  Transmission Date: 20130627
  Serious: Yes (Other)
  Sender: FDA-Public Use
  Company Number: US-PFIZER INC-2012225505

PATIENT
  Age: 37 Year
  Sex: Female
  Weight: 66 kg

DRUGS (5)
  1. LYRICA [Suspect]
     Indication: EPILEPSY
     Dosage: 100 mg, 2x/day
     Route: 048
     Dates: start: 2011
  2. LYRICA [Suspect]
     Dosage: 150 mg, 2x/day
     Route: 048
     Dates: end: 201209
  3. LYRICA [Suspect]
     Dosage: 150mg in the morning and 200mg at night
     Route: 048
     Dates: start: 201209
  4. BENADRYL [Concomitant]
     Indication: ALLERGY
     Dosage: UNK
  5. TYLENOL [Concomitant]
     Indication: SLEEP PROBLEM
     Dosage: UNK

REACTIONS (2)
  - Partial seizures [Recovered/Resolved]
  - Drug hypersensitivity [Unknown]
